FAERS Safety Report 16195628 (Version 4)
Quarter: 2019Q3

REPORT INFORMATION
  Report Type: Spontaneous
  Country: US (occurrence: US)
  Receive Date: 20190415
  Receipt Date: 20190704
  Transmission Date: 20191004
  Serious: No
  Sender: FDA-Public Use
  Company Number: US-GW PHARMA-201903USGW0508

PATIENT

DRUGS (7)
  1. TYLENOL [Concomitant]
     Active Substance: ACETAMINOPHEN
     Indication: PRODUCT USED FOR UNKNOWN INDICATION
     Dosage: UNK
     Route: 065
     Dates: start: 20010226
  2. ZONEGRAN [Concomitant]
     Active Substance: ZONISAMIDE
     Indication: PRODUCT USED FOR UNKNOWN INDICATION
     Dosage: CAP 25 MILIGRAM
     Route: 065
     Dates: start: 20180222, end: 20190825
  3. ZONEGRAN [Concomitant]
     Active Substance: ZONISAMIDE
     Dosage: CAP 50 MILLIGRAM
     Route: 065
     Dates: start: 20190221, end: 20190820
  4. ZONEGRAN [Concomitant]
     Active Substance: ZONISAMIDE
     Dosage: CAP 100 MILLIGRAM
     Route: 065
     Dates: start: 20180626, end: 20190816
  5. EPIDIOLEX [Suspect]
     Active Substance: CANNABIDIOL
     Indication: EPILEPSY
     Dosage: 150 MG, BID
     Route: 048
     Dates: start: 20190208
  6. EPIDIOLEX [Suspect]
     Active Substance: CANNABIDIOL
     Indication: FOCAL DYSCOGNITIVE SEIZURES
     Dosage: 290 MILLIGRAM, BID
     Route: 048
  7. TRAZODONE [Concomitant]
     Active Substance: TRAZODONE HYDROCHLORIDE
     Indication: PRODUCT USED FOR UNKNOWN INDICATION
     Dosage: UNK
     Route: 065
     Dates: start: 20180626, end: 20190816

REACTIONS (2)
  - Fatigue [Not Recovered/Not Resolved]
  - Somnolence [Not Recovered/Not Resolved]
